FAERS Safety Report 6552358-5 (Version None)
Quarter: 2010Q2

REPORT INFORMATION
  Report Type: 
  Country: None (occurrence: None)
  Receive Date: 20100126
  Receipt Date: 20100115
  Transmission Date: 20101027
  Serious: Yes (Hospitalization)
  Sender: FDA-Public Use
  Company Number: US-JNJFOC-20100107530

PATIENT
  Sex: Female

DRUGS (4)
  1. CHILDREN'S TYLENOL SUSPENSION [Suspect]
     Route: 048
  2. CHILDREN'S TYLENOL SUSPENSION [Suspect]
     Indication: DRUG USE FOR UNKNOWN INDICATION
     Route: 048
  3. MOTRIN [Suspect]
     Route: 048
  4. MOTRIN [Suspect]
     Indication: DRUG USE FOR UNKNOWN INDICATION
     Route: 048

REACTIONS (3)
  - DIARRHOEA [None]
  - PRODUCT QUALITY ISSUE [None]
  - VOMITING [None]
